FAERS Safety Report 10419780 (Version 1)
Quarter: 2014Q3

REPORT INFORMATION
  Report Type: Spontaneous
  Country: US (occurrence: None)
  Receive Date: 20140828
  Receipt Date: 20140828
  Transmission Date: 20150326
  Serious: Yes (Death, Other)
  Sender: FDA-Public Use
  Company Number: 2503317

PATIENT
  Age: 28 Day
  Sex: Female

DRUGS (1)
  1. CALCIUM CHLORIDE. [Suspect]
     Active Substance: CALCIUM CHLORIDE
     Dosage: UNKNOWN, UNKNOWN, INTRAVENOUS DRIP
     Route: 041

REACTIONS (3)
  - General physical health deterioration [None]
  - Calcium ionised decreased [None]
  - Cardiac arrest [None]
